FAERS Safety Report 9458394 (Version 1)
Quarter: 2013Q3

REPORT INFORMATION
  Report Type: Spontaneous
  Country: US (occurrence: US)
  Receive Date: 20130814
  Receipt Date: 20130814
  Transmission Date: 20140515
  Serious: Yes (Life-Threatening, Hospitalization, Other)
  Sender: FDA-Public Use
  Company Number: US-ROXANE LABORATORIES, INC.-2013-RO-01354RO

PATIENT
  Age: 68 Year
  Sex: Female

DRUGS (3)
  1. PREDNISONE [Suspect]
     Indication: CARDIAC FAILURE CONGESTIVE
  2. LISINOPRIL [Suspect]
  3. NADOLOL [Suspect]

REACTIONS (5)
  - Cerebral haemorrhage [Recovered/Resolved]
  - Blood pressure decreased [Recovered/Resolved]
  - Loss of consciousness [Recovered/Resolved]
  - Face injury [Recovered/Resolved]
  - Brain injury [Recovered/Resolved]
